FAERS Safety Report 7876752-5 (Version None)
Quarter: 2011Q4

REPORT INFORMATION
  Report Type: 
  Country: None (occurrence: None)
  Receive Date: 20111031
  Receipt Date: 20111026
  Transmission Date: 20120403
  Serious: Yes (Other)
  Sender: FDA-Public Use
  Company Number: US-SANOFI-AVENTIS-2011SA061989

PATIENT
  Age: 64 Year
  Sex: Female
  Weight: 73 kg

DRUGS (10)
  1. CALCITRIOL [Concomitant]
  2. GLYCERYL TRINITRATE [Concomitant]
     Route: 060
  3. METHENAMINE TAB [Concomitant]
  4. HUMALOG [Concomitant]
     Dates: start: 20110913
  5. ALLEGRA D 24 HOUR [Concomitant]
  6. LOPERAMIDE HCL [Concomitant]
     Dosage: Q6H PRN
  7. ALL OTHER THERAPEUTIC PRODUCTS [Concomitant]
     Indication: FLUID RETENTION
  8. TIMOLOL MALEATE [Concomitant]
     Dosage: 5% EYE DROPS
  9. LANTUS [Suspect]
     Indication: DIABETES MELLITUS
     Dosage: 5-10UNITS TWICE A DAY
     Route: 058
     Dates: start: 19970101
  10. ALL OTHER THERAPEUTIC PRODUCTS [Concomitant]

REACTIONS (7)
  - PRODUCT QUALITY ISSUE [None]
  - BLOOD GLUCOSE INCREASED [None]
  - VAGINAL POLYP [None]
  - HYPOGLYCAEMIA [None]
  - SCIATICA [None]
  - BLADDER NEOPLASM [None]
  - CEREBROVASCULAR ACCIDENT [None]
